FAERS Safety Report 13829253 (Version 4)
Quarter: 2017Q3

REPORT INFORMATION
  Report Type: Report from Study
  Country: US (occurrence: US)
  Receive Date: 20170803
  Receipt Date: 20170929
  Transmission Date: 20171127
  Serious: Yes (Death, Hospitalization, Other)
  Sender: FDA-Public Use
  Company Number: US-AMGEN-USACT2017114787

PATIENT
  Age: 74 Year
  Sex: Male
  Weight: 55.4 kg

DRUGS (5)
  1. ROMIPLOSTIM [Suspect]
     Active Substance: ROMIPLOSTIM
     Indication: THROMBOCYTOPENIA
     Dosage: 350 MUG, QWK
     Route: 058
     Dates: start: 20170412
  2. ROMIPLOSTIM [Suspect]
     Active Substance: ROMIPLOSTIM
     Dosage: 350 MUG, QWK
     Route: 058
     Dates: start: 20170802
  3. ROMIPLOSTIM [Suspect]
     Active Substance: ROMIPLOSTIM
     Dosage: 200 MUG, QWK
     Route: 058
     Dates: start: 20170830, end: 20170913
  4. ROMIPLOSTIM [Suspect]
     Active Substance: ROMIPLOSTIM
     Dosage: 350 MUG, QWK
     Route: 058
     Dates: start: 20170726
  5. ROMIPLOSTIM [Suspect]
     Active Substance: ROMIPLOSTIM
     Dosage: 200 MUG, QWK
     Route: 058
     Dates: start: 20170430

REACTIONS (16)
  - Muscular weakness [Unknown]
  - Chest pain [Unknown]
  - Escherichia test positive [Unknown]
  - Platelet count decreased [Recovering/Resolving]
  - Death [Fatal]
  - Night sweats [Unknown]
  - Gait disturbance [Unknown]
  - Splenomegaly [Unknown]
  - Hyperbilirubinaemia [Unknown]
  - Rectal haemorrhage [Recovering/Resolving]
  - Flank pain [Unknown]
  - Metastasis [Unknown]
  - Urinary tract infection [Unknown]
  - Bone infarction [Unknown]
  - Asthenia [Unknown]
  - Haematochezia [Recovering/Resolving]

NARRATIVE: CASE EVENT DATE: 20170717
